FAERS Safety Report 10724894 (Version 1)
Quarter: 2015Q1

REPORT INFORMATION
  Report Type: Spontaneous
  Country: US (occurrence: US)
  Receive Date: 20150120
  Receipt Date: 20150120
  Transmission Date: 20150721
  Serious: Yes (Other)
  Sender: FDA-Public Use
  Company Number: US-PFIZER INC-2015019519

PATIENT
  Age: 92 Year
  Sex: Female
  Weight: 90.7 kg

DRUGS (1)
  1. LYRICA [Suspect]
     Active Substance: PREGABALIN
     Indication: DIABETIC NEUROPATHY
     Dosage: 75 MG, 1X/DAY

REACTIONS (6)
  - Drug ineffective [Recovering/Resolving]
  - Peripheral swelling [Recovering/Resolving]
  - Fall [Unknown]
  - Muscular weakness [Recovering/Resolving]
  - Anaemia [Recovering/Resolving]
  - Dysstasia [Recovering/Resolving]
